FAERS Safety Report 11860404 (Version 3)
Quarter: 2016Q1

REPORT INFORMATION
  Report Type: Report from Study
  Country: US (occurrence: US)
  Receive Date: 20151222
  Receipt Date: 20160224
  Transmission Date: 20160526
  Serious: Yes (Hospitalization)
  Sender: FDA-Public Use
  Company Number: US-BIOGEN-2015BI111206

PATIENT
  Age: 44 Year
  Sex: Female
  Weight: 95.3 kg

DRUGS (4)
  1. AVONEX 215-MS-201 [Concomitant]
     Indication: MULTIPLE SCLEROSIS
     Route: 030
     Dates: start: 20140522
  2. BIIB033 [Suspect]
     Active Substance: OPICINUMAB
     Indication: MULTIPLE SCLEROSIS
     Route: 042
     Dates: start: 20140522
  3. MECLIZINE [Concomitant]
     Active Substance: MECLIZINE HYDROCHLORIDE
     Indication: DIZZINESS
     Route: 048
     Dates: start: 20140619
  4. NORETHINDRONE AND ETHINYL ESTRADIOL [Concomitant]
     Active Substance: ETHINYL ESTRADIOL\NORETHINDRONE
     Indication: CONTRACEPTION
     Route: 048
     Dates: start: 20150513

REACTIONS (1)
  - Uterine leiomyoma [Recovered/Resolved]

NARRATIVE: CASE EVENT DATE: 20150806
